FAERS Safety Report 17238490 (Version 1)
Quarter: 2020Q1

REPORT INFORMATION
  Report Type: Spontaneous
  Country: US (occurrence: US)
  Receive Date: 20200104
  Receipt Date: 20200104
  Transmission Date: 20200409
  Serious: Yes (Life-Threatening, Hospitalization, Disabling)
  Sender: FDA-Public Use
  Company Number: None

PATIENT
  Age: 49 Year
  Sex: Male
  Weight: 85.5 kg

DRUGS (5)
  1. ABILIFY [Suspect]
     Active Substance: ARIPIPRAZOLE
  2. ZYPREXA [Suspect]
     Active Substance: OLANZAPINE
  3. SEROQUEL [Suspect]
     Active Substance: QUETIAPINE FUMARATE
  4. RISPERIDONE. [Suspect]
     Active Substance: RISPERIDONE
  5. HALDOL [Suspect]
     Active Substance: HALOPERIDOL
     Indication: MENTAL DISORDER
     Route: 030

REACTIONS (2)
  - Condition aggravated [None]
  - Tardive dyskinesia [None]

NARRATIVE: CASE EVENT DATE: 20191211
